FAERS Safety Report 13507661 (Version 1)
Quarter: 2017Q2

REPORT INFORMATION
  Report Type: Spontaneous
  Country: US (occurrence: US)
  Receive Date: 20170503
  Receipt Date: 20170503
  Transmission Date: 20170830
  Serious: Yes (Disabling)
  Sender: FDA-Public Use
  Company Number: None

PATIENT
  Age: 26 Year
  Sex: Male
  Weight: 85.5 kg

DRUGS (5)
  1. FLUOXUTINE [Concomitant]
  2. ALPRAZOLAM. [Concomitant]
     Active Substance: ALPRAZOLAM
  3. EXCEDRIN [Concomitant]
     Active Substance: ACETAMINOPHEN\ASPIRIN\CAFFEINE
  4. CYROQUIL XR [Concomitant]
  5. LATUDA [Suspect]
     Active Substance: LURASIDONE HYDROCHLORIDE
     Indication: SCHIZOPHRENIA
     Route: 048

REACTIONS (2)
  - Facial paralysis [None]
  - Hypoaesthesia [None]

NARRATIVE: CASE EVENT DATE: 20160415
